FAERS Safety Report 17678392 (Version 2)
Quarter: 2021Q2

REPORT INFORMATION
  Report Type: Spontaneous
  Country: FR (occurrence: FR)
  Receive Date: 20200417
  Receipt Date: 20210401
  Transmission Date: 20210716
  Serious: Yes (Hospitalization)
  Sender: FDA-Public Use
  Company Number: FR-TEVA-2020-FR-1224793

PATIENT
  Age: 60 Year
  Sex: Female

DRUGS (3)
  1. RIFAMPICINE [Suspect]
     Active Substance: RIFAMPIN
     Indication: TUBERCULOSIS
     Dosage: 900MG
     Route: 048
     Dates: start: 20191102, end: 20200326
  2. ETHAMBUTOL [Suspect]
     Active Substance: ETHAMBUTOL HYDROCHLORIDE
     Indication: TUBERCULOSIS
     Dosage: 1500MG
     Route: 048
     Dates: start: 20191030, end: 20200319
  3. LEVOFLOXACINE [Suspect]
     Active Substance: LEVOFLOXACIN
     Indication: TUBERCULOSIS
     Dosage: 1G
     Route: 048
     Dates: start: 20191031, end: 20200326

REACTIONS (2)
  - Neuropathy peripheral [Recovering/Resolving]
  - Optic neuropathy [Not Recovered/Not Resolved]

NARRATIVE: CASE EVENT DATE: 202003
